FAERS Safety Report 26023118 (Version 1)
Quarter: 2025Q4

REPORT INFORMATION
  Report Type: Spontaneous
  Country: EU (occurrence: EU)
  Receive Date: 20251110
  Receipt Date: 20251110
  Transmission Date: 20260117
  Serious: Yes (Other)
  Sender: RHYTHM PHARMACEUTICALS
  Company Number: EU-RHYTHM PHARMACEUTICALS, INC.-2025RHM000404

PATIENT

DRUGS (17)
  1. IMCIVREE [Suspect]
     Active Substance: SETMELANOTIDE
     Indication: Hypothalamic obesity
     Dosage: 0.5 MILLIGRAM, QD
     Dates: start: 20250619
  2. IMCIVREE [Suspect]
     Active Substance: SETMELANOTIDE
     Dosage: 1 MILLIGRAM (AT D7 VISIT)
  3. IMCIVREE [Suspect]
     Active Substance: SETMELANOTIDE
     Dosage: 2 MILLIGRAM, QD (AT DAY 21)
  4. IMCIVREE [Suspect]
     Active Substance: SETMELANOTIDE
     Dosage: 2.5 MILLIGRAM, QD (ON M3 VISIT)
     Dates: start: 20251030
  5. OZEMPIC [Concomitant]
     Active Substance: SEMAGLUTIDE
     Indication: Obesity
     Dosage: 1.5 MILLIGRAM, QW
     Dates: start: 20240711
  6. OZEMPIC [Concomitant]
     Active Substance: SEMAGLUTIDE
     Dosage: UNK
     Dates: start: 20240412
  7. Norditropine Flexpro [Concomitant]
     Indication: Growth hormone deficiency
     Dosage: UNK
     Dates: start: 20221129
  8. LEVOTHYROXINE [Concomitant]
     Active Substance: LEVOTHYROXINE
     Indication: Hypothyroidism
     Dosage: UNK
     Dates: start: 20220428
  9. HYDROCORTISONE [Concomitant]
     Active Substance: HYDROCORTISONE
     Indication: Adrenal insufficiency
     Dosage: UNK
     Dates: start: 20220428
  10. MINIRIN [Concomitant]
     Active Substance: DESMOPRESSIN ACETATE
     Indication: Diabetes insipidus
     Dosage: UNK
     Dates: start: 20220428
  11. DYDROGESTERONE\ESTRADIOL [Concomitant]
     Active Substance: DYDROGESTERONE\ESTRADIOL
     Indication: Hypogonadism
     Dosage: UNK
     Dates: start: 20240412, end: 202405
  12. DYDROGESTERONE\ESTRADIOL [Concomitant]
     Active Substance: DYDROGESTERONE\ESTRADIOL
     Dosage: UNK
     Dates: start: 20250409
  13. CHOLECALCIFEROL [Concomitant]
     Active Substance: CHOLECALCIFEROL
     Indication: Vitamin D deficiency
     Dosage: UNK
  14. PITOLISANT HYDROCHLORIDE [Concomitant]
     Active Substance: PITOLISANT HYDROCHLORIDE
     Indication: Sleep apnoea syndrome
     Dosage: UNK
     Dates: start: 20250204
  15. METHYLPHENIDATE [Concomitant]
     Active Substance: METHYLPHENIDATE
     Indication: Hypersomnia
     Dosage: UNK
     Dates: start: 20250402
  16. FLUOXETINE [Concomitant]
     Active Substance: FLUOXETINE HYDROCHLORIDE
     Indication: Pain
     Dosage: 40 MILLIGRAM
     Dates: start: 20250915
  17. METHYLPHENIDATE [Concomitant]
     Active Substance: METHYLPHENIDATE
     Indication: Neuropsychological symptoms
     Dosage: 20 MILLIGRAM
     Dates: start: 20250904

REACTIONS (6)
  - Tendon rupture [Unknown]
  - Off label use [Not Recovered/Not Resolved]
  - Food poisoning [Recovered/Resolved]
  - Food intolerance [Recovered/Resolved]
  - Vomiting [Recovered/Resolved]
  - Diarrhoea [Recovered/Resolved]

NARRATIVE: CASE EVENT DATE: 20250619
